FAERS Safety Report 5292026-3 (Version None)
Quarter: 2007Q2

REPORT INFORMATION
  Report Type: 
  Country: None (occurrence: None)
  Receive Date: 20070410
  Receipt Date: 20070330
  Transmission Date: 20071010
  Serious: Yes (Hospitalization)
  Sender: FDA-Public Use
  Company Number: PL-JNJFOC-20060900648

PATIENT
  Sex: Female
  Weight: 63 kg

DRUGS (4)
  1. YONDELIS [Suspect]
     Indication: OVARIAN CANCER RECURRENT
     Route: 042
  2. DOXIL [Suspect]
     Indication: OVARIAN CANCER RECURRENT
     Route: 042
  3. ZOFRAN [Concomitant]
     Indication: PROPHYLAXIS OF NAUSEA AND VOMITING
     Route: 048
  4. ZOFRAN [Concomitant]
     Route: 042

REACTIONS (1)
  - ANAEMIA [None]
